FAERS Safety Report 18417673 (Version 1)
Quarter: 2020Q4

REPORT INFORMATION
  Report Type: Spontaneous
  Country: US (occurrence: US)
  Receive Date: 20201022
  Receipt Date: 20201022
  Transmission Date: 20210114
  Serious: No
  Sender: FDA-Public Use
  Company Number: US-SEATTLE GENETICS-2020SGN03836

PATIENT
  Sex: Female

DRUGS (3)
  1. TUKYSA [Suspect]
     Active Substance: TUCATINIB
     Indication: PRODUCT USED FOR UNKNOWN INDICATION
     Dosage: 150 MG, BID
     Route: 048
  2. TUKYSA [Suspect]
     Active Substance: TUCATINIB
     Dosage: 200 MG, BID
  3. TUKYSA [Suspect]
     Active Substance: TUCATINIB
     Dosage: 300 MG, BID

REACTIONS (9)
  - Illness [Unknown]
  - Confusional state [Unknown]
  - Incorrect dose administered [Unknown]
  - Mental disorder [Unknown]
  - Disturbance in attention [Unknown]
  - Diarrhoea [Unknown]
  - Memory impairment [Unknown]
  - Bronchitis [Unknown]
  - Product dispensing error [Unknown]
